FAERS Safety Report 8143769-5 (Version None)
Quarter: 2012Q1

REPORT INFORMATION
  Report Type: 
  Country: None (occurrence: None)
  Receive Date: 20120217
  Receipt Date: 20120208
  Transmission Date: 20120608
  Serious: Yes (Death)
  Sender: FDA-Public Use
  Company Number: BE-JNJFOC-20120205065

PATIENT
  Sex: Female

DRUGS (11)
  1. ALPRAZOLAM [Concomitant]
  2. DEPAKENE [Concomitant]
  3. BISOPROLOL FUMARATE [Concomitant]
  4. ALLOPURINOL [Concomitant]
  5. FERROUS GLUCONATE [Concomitant]
  6. LANITOP [Concomitant]
  7. BUMETANIDE [Concomitant]
  8. XARELTO [Suspect]
     Indication: CEREBROVASCULAR ACCIDENT PROPHYLAXIS
     Route: 065
     Dates: start: 20111109, end: 20120124
  9. LEVOTHYROXINE SODIUM [Concomitant]
  10. MOVIPREP [Concomitant]
  11. AMLODIPINE BESYLATE [Concomitant]

REACTIONS (2)
  - URINARY TRACT INFECTION [None]
  - RENAL FAILURE ACUTE [None]
